FAERS Safety Report 12127789 (Version 1)
Quarter: 2016Q1

REPORT INFORMATION
  Report Type: Spontaneous
  Country: CA (occurrence: CA)
  Receive Date: 20160229
  Receipt Date: 20160229
  Transmission Date: 20160526
  Serious: Yes (Life-Threatening, Hospitalization, Disabling)
  Sender: FDA-Public Use
  Company Number: CA-TEVA-637949ACC

PATIENT
  Age: 12 Year
  Sex: Male
  Weight: 3 kg

DRUGS (7)
  1. ABILIFY [Suspect]
     Active Substance: ARIPIPRAZOLE
     Dosage: 15 MILLIGRAM DAILY;
     Route: 063
  2. SERTRALINE [Suspect]
     Active Substance: SERTRALINE HYDROCHLORIDE
     Indication: BIPOLAR DISORDER
     Dosage: 100 MILLIGRAM DAILY;
     Route: 064
  3. ABILIFY [Suspect]
     Active Substance: ARIPIPRAZOLE
     Indication: BIPOLAR DISORDER
     Dosage: 15 MILLIGRAM DAILY;
     Route: 064
  4. LAMICTAL [Suspect]
     Active Substance: LAMOTRIGINE
     Dosage: 250 MILLIGRAM DAILY;
     Route: 064
  5. LAMICTAL [Suspect]
     Active Substance: LAMOTRIGINE
     Indication: BIPOLAR DISORDER
     Dosage: 250 MILLIGRAM DAILY;
     Route: 063
  6. SERTRALINE [Suspect]
     Active Substance: SERTRALINE HYDROCHLORIDE
     Dosage: 100 MILLIGRAM DAILY;
     Route: 063
  7. SYNTHROID [Concomitant]
     Active Substance: LEVOTHYROXINE SODIUM

REACTIONS (10)
  - Extremity necrosis [Recovering/Resolving]
  - Hypernatraemia [Recovering/Resolving]
  - Foot amputation [Recovering/Resolving]
  - Heart rate increased [Recovering/Resolving]
  - Dehydration [Recovering/Resolving]
  - Thrombosis [Recovering/Resolving]
  - Somnolence [Recovering/Resolving]
  - Weight decreased [Recovering/Resolving]
  - Crystal urine present [Recovering/Resolving]
  - Skin graft [Recovering/Resolving]
